FAERS Safety Report 5934535-7 (Version None)
Quarter: 2008Q4

REPORT INFORMATION
  Report Type: 
  Country: None (occurrence: None)
  Receive Date: 20081029
  Receipt Date: 20081017
  Transmission Date: 20090506
  Serious: Yes (Life-Threatening, Hospitalization, Other)
  Sender: FDA-Public Use
  Company Number: US-PFIZER INC-2008077417

PATIENT
  Sex: Male

DRUGS (2)
  1. ZYVOX [Suspect]
     Indication: STAPHYLOCOCCAL INFECTION
     Route: 042
  2. ZYVOX [Suspect]
     Indication: CELLULITIS

REACTIONS (2)
  - ACUTE PULMONARY OEDEMA [None]
  - RESPIRATORY DISTRESS [None]
